FAERS Safety Report 12104581 (Version 1)
Quarter: 2016Q1

REPORT INFORMATION
  Report Type: Spontaneous
  Country: US (occurrence: US)
  Receive Date: 20160223
  Receipt Date: 20160223
  Transmission Date: 20160526
  Serious: No
  Sender: FDA-Public Use
  Company Number: US-BIOGEN-2015BI145334

PATIENT
  Age: 45 Year
  Sex: Female

DRUGS (2)
  1. TECFIDERA [Suspect]
     Active Substance: DIMETHYL FUMARATE
     Dosage: MAINTENANCE DOSE
     Route: 048
     Dates: start: 201408, end: 201510
  2. TECFIDERA [Suspect]
     Active Substance: DIMETHYL FUMARATE
     Indication: MULTIPLE SCLEROSIS
     Dosage: MAINTENANCE DOSE
     Route: 048
     Dates: start: 20140722

REACTIONS (6)
  - General physical health deterioration [Unknown]
  - Urinary incontinence [Unknown]
  - Asthenia [Unknown]
  - Drug ineffective [Recovered/Resolved]
  - Migraine [Unknown]
  - Fatigue [Unknown]

NARRATIVE: CASE EVENT DATE: 201408
